FAERS Safety Report 9477498 (Version 1)
Quarter: 2013Q3

REPORT INFORMATION
  Report Type: Spontaneous
  Country: US (occurrence: US)
  Receive Date: 20130827
  Receipt Date: 20130827
  Transmission Date: 20140515
  Serious: Yes (Other)
  Sender: FDA-Public Use
  Company Number: US-AMGEN-USASP2013059163

PATIENT
  Age: 86 Year
  Sex: Female

DRUGS (3)
  1. NEULASTA [Suspect]
     Indication: NEUTROPENIA
     Dosage: UNK
     Route: 065
  2. PROCRIT [Concomitant]
     Dosage: UNK
  3. CHEMOTHERAPEUTICS [Concomitant]
     Indication: OVARIAN CANCER
     Dosage: UNK

REACTIONS (2)
  - Aplastic anaemia [Not Recovered/Not Resolved]
  - Injection site rash [Not Recovered/Not Resolved]
